FAERS Safety Report 5840062-8 (Version None)
Quarter: 2008Q3

REPORT INFORMATION
  Report Type: 
  Country: None (occurrence: None)
  Receive Date: 20080811
  Receipt Date: 20080807
  Transmission Date: 20090109
  Serious: Yes (Hospitalization)
  Sender: FDA-Public Use
  Company Number: A0715399A

PATIENT
  Age: 18 Year
  Sex: Female

DRUGS (2)
  1. ALLI [Suspect]
     Indication: WEIGHT LOSS DIET
     Route: 048
     Dates: start: 20080224, end: 20080310
  2. NO CONCURRENT MEDICATION [Concomitant]

REACTIONS (13)
  - BLOOD CREATININE INCREASED [None]
  - BLOOD PRESSURE INCREASED [None]
  - BLOOD UREA INCREASED [None]
  - DYSPNOEA [None]
  - EYELID OEDEMA [None]
  - FLUID RETENTION [None]
  - GLOMERULONEPHRITIS [None]
  - HEADACHE [None]
  - OEDEMA [None]
  - OEDEMA PERIPHERAL [None]
  - PULMONARY OEDEMA [None]
  - URINARY TRACT INFECTION [None]
  - URINE OUTPUT DECREASED [None]
